FAERS Safety Report 12093332 (Version 1)
Quarter: 2016Q1

REPORT INFORMATION
  Report Type: Spontaneous
  Country: US (occurrence: None)
  Receive Date: 20160218
  Receipt Date: 20160218
  Transmission Date: 20160526
  Serious: No
  Sender: FDA-Public Use
  Company Number: None

PATIENT

DRUGS (2)
  1. CARDENE [Suspect]
     Active Substance: NICARDIPINE HYDROCHLORIDE
     Dosage: INJECTION 40 MG IN 200 ML 1 GALAXY SINGLE DOSE CONTAINER
  2. NEXTERONE [Suspect]
     Active Substance: AMIODARONE HYDROCHLORIDE
     Dosage: INJECTION 360 MG/200 ML 1 GALAXY SINGLE DOSE CONTAINER

REACTIONS (2)
  - Intercepted product selection error [None]
  - Product packaging confusion [None]
